FAERS Safety Report 7578941-6 (Version None)
Quarter: 2011Q2

REPORT INFORMATION
  Report Type: 
  Country: None (occurrence: None)
  Receive Date: 20110628
  Receipt Date: 20110614
  Transmission Date: 20111010
  Serious: Yes (Hospitalization)
  Sender: FDA-Public Use
  Company Number: US-JNJFOC-20101208302

PATIENT
  Sex: Female
  Weight: 91.16 kg

DRUGS (13)
  1. IBUPROFEN [Suspect]
     Indication: ARTHRITIS
     Route: 048
     Dates: start: 20070907, end: 20101020
  2. LOTREL [Concomitant]
     Dates: start: 20050101
  3. CALCIUM CARBONATE [Concomitant]
     Dates: start: 20060801
  4. FUROSEMIDE [Concomitant]
     Dates: start: 20040101
  5. ALBUTEROL SULFATE AUTOHALER [Concomitant]
     Dates: start: 20000101
  6. GLUCOTROL [Concomitant]
     Dates: start: 20090505
  7. CLONIDINE [Concomitant]
     Dates: start: 20090505
  8. NORVASC [Concomitant]
     Dates: start: 20080415
  9. METFORMIN HCL [Concomitant]
     Dates: start: 20090505
  10. ZYRTEC [Concomitant]
     Dates: start: 20000101
  11. CENTRUM MULTIVITAMINS [Concomitant]
     Dates: start: 19870101
  12. BENAZEPRIL HYDROCHLORIDE [Concomitant]
     Dates: start: 20080415
  13. NEXIUM [Concomitant]
     Dates: start: 20100907, end: 20101020

REACTIONS (1)
  - COLONIC POLYP [None]
